FAERS Safety Report 5980043-7 (Version None)
Quarter: 2008Q4

REPORT INFORMATION
  Report Type: 
  Country: None (occurrence: None)
  Receive Date: 20081205
  Receipt Date: 20081126
  Transmission Date: 20090506
  Serious: Yes (Hospitalization, Other)
  Sender: FDA-Public Use
  Company Number: CA-JNJFOC-20080900582

PATIENT
  Sex: Male
  Weight: 65.5 kg

DRUGS (2)
  1. REMICADE [Suspect]
     Indication: PSORIASIS
     Route: 042
  2. METHOTREXATE [Concomitant]
     Dosage: GIVEN 1 WEEK PRIOR TO INFLIXIMAB INFUSION
     Route: 048

REACTIONS (5)
  - ACUTE RESPIRATORY FAILURE [None]
  - ALCOHOL WITHDRAWAL SYNDROME [None]
  - CONVULSION [None]
  - FALL [None]
  - SUBDURAL HAEMORRHAGE [None]
